FAERS Safety Report 4970286-3 (Version None)
Quarter: 2006Q2

REPORT INFORMATION
  Report Type: 
  Country: None (occurrence: None)
  Receive Date: 20060412
  Receipt Date: 20040816
  Transmission Date: 20061013
  Serious: Yes (Other)
  Sender: FDA-Public Use
  Company Number: FR-BRISTOL-MYERS SQUIBB COMPANY-12675963

PATIENT
  Age: 47 Year
  Sex: Male

DRUGS (2)
  1. ERBITUX [Suspect]
     Indication: COLORECTAL CANCER METASTATIC
     Dosage: PT HAD REC'D ONLY ONE DOSE PRIOR TO EVENT.
     Route: 042
     Dates: start: 20040601, end: 20040730
  2. IRINOTECAN [Suspect]
     Indication: COLORECTAL CANCER METASTATIC
     Dosage: PT HAD REC'D ONLY ONE DOSE PRIOR TO EVENT.
     Route: 042
     Dates: start: 20040601, end: 20040730

REACTIONS (2)
  - DISEASE PROGRESSION [None]
  - ULCERATIVE KERATITIS [None]
